FAERS Safety Report 12921973 (Version 1)
Quarter: 2016Q4

REPORT INFORMATION
  Report Type: Spontaneous
  Country: GB (occurrence: GB)
  Receive Date: 20161108
  Receipt Date: 20161108
  Transmission Date: 20170207
  Serious: Yes (Other)
  Sender: FDA-Public Use
  Company Number: GB-LEO PHARMA-244616

PATIENT
  Age: 53 Year
  Sex: Female
  Weight: 69.85 kg

DRUGS (2)
  1. PICATO [Suspect]
     Active Substance: INGENOL MEBUTATE
     Indication: SUNBURN
     Dosage: TUBE
     Route: 061
     Dates: start: 20160930, end: 20161003
  2. HRT [Concomitant]
     Active Substance: UNSPECIFIED INGREDIENT
     Indication: PRODUCT USED FOR UNKNOWN INDICATION

REACTIONS (6)
  - Product use issue [Unknown]
  - Application site scar [Unknown]
  - Application site pain [Recovering/Resolving]
  - Application site vesicles [Recovering/Resolving]
  - Application site discharge [Recovering/Resolving]
  - Application site haemorrhage [Recovering/Resolving]

NARRATIVE: CASE EVENT DATE: 20161001
